FAERS Safety Report 17816927 (Version 12)
Quarter: 2021Q3

REPORT INFORMATION
  Report Type: Report from Study
  Country: JP (occurrence: JP)
  Receive Date: 20200522
  Receipt Date: 20210723
  Transmission Date: 20211014
  Serious: Yes (Death, Hospitalization)
  Sender: FDA-Public Use
  Company Number: JP-ROCHE-2599499

PATIENT
  Age: 65 Year
  Sex: Female
  Weight: 55.6 kg

DRUGS (11)
  1. AMLODIN [Concomitant]
     Active Substance: AMLODIPINE BESYLATE
     Indication: HYPERTENSION
     Route: 048
     Dates: start: 20200331
  2. PICOSULFATE NA [Concomitant]
     Active Substance: SODIUM PICOSULFATE
     Indication: CONSTIPATION
     Route: 048
     Dates: start: 20200312
  3. NAUZELIN [Concomitant]
     Active Substance: DOMPERIDONE
     Indication: NAUSEA
     Route: 048
     Dates: start: 20200316
  4. PLACEBO [Suspect]
     Active Substance: UNSPECIFIED INGREDIENT
     Indication: LUNG NEOPLASM MALIGNANT
     Route: 042
     Dates: start: 20200311
  5. LOXOPROFEN [Concomitant]
     Active Substance: LOXOPROFEN
     Indication: PAIN
     Dosage: SINGLE USE
     Route: 048
     Dates: start: 20200310
  6. CARBOPLATIN. [Suspect]
     Active Substance: CARBOPLATIN
     Indication: LUNG NEOPLASM MALIGNANT
     Dosage: ON 11/MAR/2020: DATE OF MOST RECENT DOSE OF CARBOPLATIN PRIOR TO AE/SAE ONSET
     Route: 041
     Dates: start: 20200311, end: 20200422
  7. ATEZOLIZUMAB. [Suspect]
     Active Substance: ATEZOLIZUMAB
     Indication: LUNG NEOPLASM MALIGNANT
     Dosage: ON 11/MAR/2020: DATE OF MOST RECENT DOSE OF ATEZOLIZUMAB PRIOR TO AE/SAE ONSET
     Route: 041
     Dates: start: 20200311, end: 20200422
  8. ETOPOSIDE. [Suspect]
     Active Substance: ETOPOSIDE
     Indication: LUNG NEOPLASM MALIGNANT
     Dosage: ON 13/MAR/2020: DATE OF MOST RECENT DOSE OF ETOPOSIDE PRIOR TO AE/SAE ONSET
     Route: 041
     Dates: start: 20200311, end: 20200422
  9. AMLODIN [Concomitant]
     Active Substance: AMLODIPINE BESYLATE
     Route: 048
  10. REBAMIPIDE [Concomitant]
     Active Substance: REBAMIPIDE
     Indication: GASTROINTESTINAL DISORDER PROPHYLAXIS
     Route: 048
     Dates: start: 20200310
  11. PICOSULFATE NA [Concomitant]
     Active Substance: SODIUM PICOSULFATE
     Indication: CONSTIPATION
     Dosage: DOSAGE: PROPER QUANTITY AND DOSE INTERVAL: PROPERLY
     Route: 048
     Dates: start: 20200312

REACTIONS (6)
  - Hypertension [Not Recovered/Not Resolved]
  - Vomiting [Recovered/Resolved]
  - Drug-induced liver injury [Not Recovered/Not Resolved]
  - Embolism [Fatal]
  - Platelet count decreased [Not Recovered/Not Resolved]
  - Nausea [Not Recovered/Not Resolved]

NARRATIVE: CASE EVENT DATE: 20200318
